FAERS Safety Report 6511889-4 (Version None)
Quarter: 2009Q4

REPORT INFORMATION
  Report Type: 
  Country: None (occurrence: None)
  Receive Date: 20091222
  Receipt Date: 20090622
  Transmission Date: 20100525
  Serious: No
  Sender: FDA-Public Use
  Company Number: US-ASTRAZENECA-2009UW16785

PATIENT
  Age: 29503 Day
  Sex: Female
  Weight: 69.4 kg

DRUGS (4)
  1. CRESTOR [Suspect]
     Route: 048
     Dates: start: 20090619
  2. WELCHOL [Concomitant]
  3. BLOOD PRESSURE MEDICATION [Concomitant]
  4. GERD [Concomitant]

REACTIONS (2)
  - ABDOMINAL PAIN UPPER [None]
  - INCORRECT DOSE ADMINISTERED [None]
